FAERS Safety Report 20456026 (Version 2)
Quarter: 2022Q1

REPORT INFORMATION
  Report Type: Spontaneous
  Country: HU (occurrence: IT)
  Receive Date: 20220210
  Receipt Date: 20220218
  Transmission Date: 20220424
  Serious: Yes (Life-Threatening)
  Sender: FDA-Public Use
  Company Number: HU-OCTA-LIT00522HU

PATIENT
  Sex: Male

DRUGS (3)
  1. HUMAN COAGULATION FACTOR VIII/VON WILLEBRAND FACTOR COMPLEX [Suspect]
     Active Substance: HUMAN COAGULATION FACTOR VIII/VON WILLEBRAND FACTOR COMPLEX
     Indication: Haemorrhage intracranial
     Route: 042
  2. HUMAN COAGULATION FACTOR VIII/VON WILLEBRAND FACTOR COMPLEX [Suspect]
     Active Substance: HUMAN COAGULATION FACTOR VIII/VON WILLEBRAND FACTOR COMPLEX
     Indication: Factor VIII deficiency
  3. EMOCLOT [Suspect]
     Active Substance: ANTIHEMOPHILIC FACTOR HUMAN
     Route: 042

REACTIONS (2)
  - Anti factor VIII antibody positive [Recovered/Resolved]
  - Retroperitoneal haemorrhage [Recovered/Resolved]
